FAERS Safety Report 4337709-4 (Version None)
Quarter: 2004Q2

REPORT INFORMATION
  Report Type: 
  Country: None (occurrence: None)
  Receive Date: 20040413
  Receipt Date: 20040225
  Transmission Date: 20050107
  Serious: Yes (Death)
  Sender: FDA-Public Use
  Company Number: US-ROCHE-360089

PATIENT
  Age: 44 Year
  Sex: Male

DRUGS (20)
  1. FUZEON [Suspect]
     Indication: DRUG USE FOR UNKNOWN INDICATION
     Route: 058
  2. VICODIN [Concomitant]
     Indication: PAIN
     Dosage: DOSE STATED AS PRN
     Route: 048
  3. PROTONIX [Concomitant]
     Dosage: DOSE ALSO STATED AS 1 TABLET DAILY (STRENGTH STATED AS 40MG)
     Route: 048
  4. ACYCLOVIR [Concomitant]
     Route: 048
  5. THIAMINE [Concomitant]
     Route: 048
  6. MULTI-VITAMIN [Concomitant]
     Route: 048
  7. ATIVAN [Concomitant]
     Indication: ANXIETY
     Route: 042
  8. COLACE [Concomitant]
     Indication: CONSTIPATION
     Route: 048
  9. DEPAKOTE [Concomitant]
     Route: 048
  10. TRAZODONE HCL [Concomitant]
     Indication: INSOMNIA
     Dosage: DOSE TAKEN AT NIGHT
     Route: 048
  11. FOLATE [Concomitant]
     Route: 048
  12. ZOLOFT [Concomitant]
     Route: 048
  13. IMIPRAMINE [Concomitant]
     Route: 048
  14. NEURONTIN [Concomitant]
     Route: 048
  15. VIREAD [Concomitant]
     Route: 048
  16. COMBIVIR [Concomitant]
     Route: 048
  17. RITONAVIR [Concomitant]
     Route: 048
  18. FORTOVASE [Concomitant]
     Route: 048
  19. SEPTRA DS [Concomitant]
     Route: 048
  20. PHENERGAN [Concomitant]
     Indication: NAUSEA
     Route: 048

REACTIONS (1)
  - CONVULSION [None]
